FAERS Safety Report 19401830 (Version 3)
Quarter: 2022Q3

REPORT INFORMATION
  Report Type: Report from Study
  Country: US (occurrence: None)
  Receive Date: 20210611
  Receipt Date: 20220812
  Transmission Date: 20221027
  Serious: Yes (Hospitalization, Other)
  Sender: FDA-Public Use
  Company Number: US-MERCK HEALTHCARE KGAA-9243369

PATIENT
  Sex: Female

DRUGS (1)
  1. REBIF [Suspect]
     Active Substance: INTERFERON BETA-1A
     Indication: Multiple sclerosis
     Route: 058
     Dates: start: 20060701

REACTIONS (9)
  - Diabetes mellitus [Unknown]
  - Myocardial infarction [Unknown]
  - Pneumonia [Unknown]
  - Loss of consciousness [Unknown]
  - Abnormal weight gain [Unknown]
  - Fall [Unknown]
  - Gait disturbance [Unknown]
  - Skin laceration [Unknown]
  - Product administration interrupted [Unknown]
